FAERS Safety Report 25547138 (Version 1)
Quarter: 2025Q3

REPORT INFORMATION
  Report Type: Report from Study
  Country: US (occurrence: US)
  Receive Date: 20250714
  Receipt Date: 20250714
  Transmission Date: 20251021
  Serious: No
  Sender: ACADIA PHARMACEUTICALS
  Company Number: US-ACADIA PHARMACEUTICALS INC.-ACA-2025-PIM-008103

PATIENT
  Sex: Female

DRUGS (14)
  1. NUPLAZID [Suspect]
     Active Substance: PIMAVANSERIN TARTRATE
     Indication: Parkinson^s disease
     Dosage: 34 MILLIGRAM, QD
     Route: 048
     Dates: start: 20221101
  2. ASCORBIC ACID [Concomitant]
     Active Substance: ASCORBIC ACID
  3. VITAMIN B12 [Concomitant]
     Active Substance: CYANOCOBALAMIN
  4. CALTRATE +D [CALCIUM;COLECALCIFEROL] [Concomitant]
  5. CARBIDOPA\LEVODOPA [Concomitant]
     Active Substance: CARBIDOPA\LEVODOPA
  6. GOCOVRI [Concomitant]
     Active Substance: AMANTADINE
  7. MIDODRINE [Concomitant]
     Active Substance: MIDODRINE
  8. NOURIANZ [Concomitant]
     Active Substance: ISTRADEFYLLINE
  9. PRAMIPEXOLE [Concomitant]
     Active Substance: PRAMIPEXOLE
  10. RYTARY [Concomitant]
     Active Substance: CARBIDOPA\LEVODOPA
  11. RYTARY [Concomitant]
     Active Substance: CARBIDOPA\LEVODOPA
  12. VITAMIN D3 [Concomitant]
     Active Substance: CHOLECALCIFEROL
  13. XADAGO [Concomitant]
     Active Substance: SAFINAMIDE MESYLATE
  14. XADAGO [Concomitant]
     Active Substance: SAFINAMIDE MESYLATE

REACTIONS (1)
  - Product dose omission issue [Not Recovered/Not Resolved]
